FAERS Safety Report 8483538-X (Version None)
Quarter: 2012Q3

REPORT INFORMATION
  Report Type: 
  Country: None (occurrence: None)
  Receive Date: 20120702
  Receipt Date: 20120627
  Transmission Date: 20120928
  Serious: Yes (Hospitalization)
  Sender: FDA-Public Use
  Company Number: US-MERCK-1201USA03927

PATIENT
  Age: 57 Year
  Sex: Female
  Weight: 66 kg

DRUGS (4)
  1. VITAMINS (UNSPECIFIED) [Concomitant]
     Route: 065
     Dates: start: 19970101
  2. FOSAMAX [Suspect]
     Route: 048
     Dates: start: 20010101, end: 20100701
  3. FOSAMAX [Suspect]
     Indication: OSTEOPENIA
     Route: 048
     Dates: start: 19980804, end: 20010101
  4. CALCIUM (UNSPECIFIED) [Concomitant]
     Route: 065
     Dates: start: 19970101

REACTIONS (14)
  - HYPONATRAEMIA [None]
  - DERMATITIS CONTACT [None]
  - DIVERTICULITIS [None]
  - LEUKOCYTOSIS [None]
  - BLOOD PRESSURE [None]
  - BLOOD CHOLESTEROL INCREASED [None]
  - ARTHROPATHY [None]
  - FEMUR FRACTURE [None]
  - HYPOKALAEMIA [None]
  - OSTEOPOROSIS [None]
  - HAEMORRHAGE [None]
  - GASTROOESOPHAGEAL REFLUX DISEASE [None]
  - FALL [None]
  - HYPOVOLAEMIA [None]
